FAERS Safety Report 8533858-5 (Version None)
Quarter: 2012Q3

REPORT INFORMATION
  Report Type: 
  Country: None (occurrence: None)
  Receive Date: 20120724
  Receipt Date: 20120716
  Transmission Date: 20120928
  Serious: Yes (Other)
  Sender: FDA-Public Use
  Company Number: US-ROCHE-1077261

PATIENT
  Sex: Female
  Weight: 58.112 kg

DRUGS (5)
  1. FLONASE [Concomitant]
     Indication: RHINITIS ALLERGIC
     Dosage: INHALATION FREQ: GD-BID
  2. XOLAIR [Suspect]
     Indication: ASTHMA
     Route: 058
     Dates: start: 20110425, end: 20120509
  3. ADVAIR DISKUS 100/50 [Concomitant]
     Indication: ASTHMA
     Dosage: DOSE: 2 PUFF BID
     Route: 048
  4. XOPENEX [Concomitant]
     Indication: ASTHMA
     Dosage: DOSE: 2 PUFF BID
     Route: 048
  5. EPIPEN [Concomitant]
     Indication: FOOD ALLERGY
     Route: 030

REACTIONS (3)
  - PYREXIA [None]
  - HEADACHE [None]
  - LETHARGY [None]
